FAERS Safety Report 6549634-9 (Version None)
Quarter: 2010Q1

REPORT INFORMATION
  Report Type: 
  Country: None (occurrence: None)
  Receive Date: 20100125
  Receipt Date: 20100118
  Transmission Date: 20100710
  Serious: Yes (Death, Life-Threatening, Other)
  Sender: FDA-Public Use
  Company Number: AU-ABBOTT-10P-008-0621372-00

PATIENT
  Age: 39 Year
  Sex: Male

DRUGS (2)
  1. KALETRA [Suspect]
     Indication: HIV INFECTION
     Dates: start: 20050501
  2. TRUVADA [Suspect]
     Indication: HIV INFECTION
     Dates: start: 20060801

REACTIONS (4)
  - ANAL CANCER METASTATIC [None]
  - LEUKOPENIA [None]
  - LYMPHOPENIA [None]
  - PNEUMONIA [None]
